FAERS Safety Report 8254336-7 (Version None)
Quarter: 2012Q2

REPORT INFORMATION
  Report Type: 
  Country: None (occurrence: None)
  Receive Date: 20120402
  Receipt Date: 20120323
  Transmission Date: 20120825
  Serious: No
  Sender: FDA-Public Use
  Company Number: US-AMGEN-USASP2012018981

PATIENT
  Age: 35 Year
  Sex: Female

DRUGS (1)
  1. ENBREL [Suspect]
     Indication: ANKYLOSING SPONDYLITIS
     Dosage: 25 MG, 2 TIMES/WK
     Dates: start: 20111223

REACTIONS (9)
  - INJECTION SITE INDURATION [None]
  - INJECTION SITE HAEMATOMA [None]
  - INJECTION SITE MASS [None]
  - WHEEZING [None]
  - RASH ERYTHEMATOUS [None]
  - HAEMOPTYSIS [None]
  - COUGH [None]
  - ABDOMINAL PAIN UPPER [None]
  - EYE INFECTION [None]
